FAERS Safety Report 6809809-8 (Version None)
Quarter: 2010Q2

REPORT INFORMATION
  Report Type: 
  Country: None (occurrence: None)
  Receive Date: 20100630
  Receipt Date: 20100609
  Transmission Date: 20101027
  Serious: No
  Sender: FDA-Public Use
  Company Number: US-BAYER-201026082NA

PATIENT
  Age: 40 Year
  Sex: Female

DRUGS (1)
  1. MAGNEVIST [Suspect]
     Indication: DRUG USE FOR UNKNOWN INDICATION
     Dosage: TOTAL DAILY DOSE: 15 ML
     Route: 042
     Dates: start: 20100609, end: 20100609

REACTIONS (2)
  - NAUSEA [None]
  - VOMITING [None]
